FAERS Safety Report 9908600 (Version 1)
Quarter: 2014Q1

REPORT INFORMATION
  Report Type: Spontaneous
  Country: US (occurrence: None)
  Receive Date: 20140214
  Receipt Date: 20140214
  Transmission Date: 20141002
  Serious: Yes (Hospitalization)
  Sender: FDA-Public Use
  Company Number: None

PATIENT
  Age: 47 Year
  Sex: Male
  Weight: 78 kg

DRUGS (13)
  1. MIDAZOLAM [Suspect]
     Indication: SEDATION
     Dosage: RECENT
     Route: 042
  2. MIDAZOLAM [Suspect]
     Indication: PREOPERATIVE CARE
     Dosage: RECENT
     Route: 042
  3. FENTANYL [Suspect]
     Indication: SEDATION
     Dosage: RECENT
     Route: 042
  4. FENTANYL [Suspect]
     Indication: PREOPERATIVE CARE
     Dosage: RECENT
     Route: 042
  5. ANCEF [Concomitant]
  6. ROPIVICAINE [Concomitant]
  7. ROPIVICAINE [Concomitant]
  8. MEPIVICAINE [Concomitant]
  9. GLYCOPYRROLATE [Concomitant]
  10. NEOSYNEPHRINE [Concomitant]
  11. EPHEDRINE [Concomitant]
  12. LABETOLOL [Concomitant]
  13. METPROLOL [Concomitant]

REACTIONS (3)
  - Hypoventilation [None]
  - Unresponsive to stimuli [None]
  - Bradycardia [None]
